FAERS Safety Report 9971529 (Version 1)
Quarter: 2014Q1

REPORT INFORMATION
  Report Type: Report from Study
  Country: NL (occurrence: NL)
  Receive Date: 20140306
  Receipt Date: 20140306
  Transmission Date: 20141002
  Serious: Yes (Hospitalization)
  Sender: FDA-Public Use
  Company Number: PHHY2014NL027369

PATIENT
  Age: 82 Year
  Sex: Female

DRUGS (6)
  1. ZOMETA [Suspect]
     Indication: BREAST CANCER METASTATIC
     Dosage: 4 MG, ONCE EVERY 4 WEEKS
     Route: 042
  2. ZOMETA [Suspect]
     Dosage: 4 MG, ONCE EVERY 4 WEEKS
     Route: 042
     Dates: start: 20140203
  3. ZOMETA [Suspect]
     Dosage: 4 MG, ONCE EVERY 4 WEEKS
     Route: 042
     Dates: start: 20140304
  4. PARACETAMOL [Concomitant]
     Dosage: 500 MG, 6 TIMES
  5. XELODA [Concomitant]
     Dosage: UNK UKN, UNK
  6. VALERIAN [Concomitant]
     Dosage: UNK UKN, UNK

REACTIONS (2)
  - Pulmonary embolism [Recovering/Resolving]
  - Dyspnoea [Recovering/Resolving]
